FAERS Safety Report 14024154 (Version 3)
Quarter: 2018Q1

REPORT INFORMATION
  Report Type: Spontaneous
  Country: JP (occurrence: JP)
  Receive Date: 20170929
  Receipt Date: 20180320
  Transmission Date: 20180508
  Serious: Yes (Hospitalization, Other)
  Sender: FDA-Public Use
  Company Number: JP-JNJFOC-20170620625

PATIENT
  Age: 77 Year
  Sex: Male
  Weight: 53.8 kg

DRUGS (12)
  1. XARELTO [Suspect]
     Active Substance: RIVAROXABAN
     Indication: ATRIAL FIBRILLATION
     Route: 048
     Dates: start: 20150407, end: 20150416
  2. AMBROXOL HYDROCHLORIDE [Concomitant]
     Active Substance: AMBROXOL HYDROCHLORIDE
     Route: 048
  3. MIRABEGRON [Concomitant]
     Active Substance: MIRABEGRON
     Route: 048
  4. IMIDAFENACIN [Concomitant]
     Active Substance: IMIDAFENACIN
     Route: 048
  5. XARELTO [Suspect]
     Active Substance: RIVAROXABAN
     Indication: ATRIAL FIBRILLATION
     Route: 048
     Dates: start: 20150405, end: 20150405
  6. CILOSTAZOL. [Suspect]
     Active Substance: CILOSTAZOL
     Indication: PRODUCT USED FOR UNKNOWN INDICATION
     Route: 048
     Dates: start: 20150315
  7. LIORESAL [Concomitant]
     Active Substance: BACLOFEN
     Dosage: DOSAGE: UNKNOWN
     Route: 048
  8. VANARL N [Concomitant]
     Dosage: DOSAGE: UNKNOWN
     Route: 048
  9. FLIVAS [Concomitant]
     Active Substance: NAFTOPIDIL
     Route: 048
  10. BROTIZOLAM [Concomitant]
     Active Substance: BROTIZOLAM
     Route: 048
  11. LANSOPRAZOLE. [Concomitant]
     Active Substance: LANSOPRAZOLE
     Route: 048
  12. MAGNESIUM OXIDE. [Concomitant]
     Active Substance: MAGNESIUM OXIDE
     Route: 048

REACTIONS (6)
  - Hemiplegia [Recovered/Resolved with Sequelae]
  - Bone neoplasm [Recovered/Resolved]
  - Tumour compression [Recovered/Resolved]
  - Subdural haematoma [Recovered/Resolved with Sequelae]
  - Renal impairment [Unknown]
  - Extradural neoplasm [Recovered/Resolved]

NARRATIVE: CASE EVENT DATE: 20150416
